FAERS Safety Report 23337728 (Version 2)
Quarter: 2024Q1

REPORT INFORMATION
  Report Type: Spontaneous
  Country: US (occurrence: US)
  Receive Date: 20231226
  Receipt Date: 20240306
  Transmission Date: 20240410
  Serious: Yes (Hospitalization)
  Sender: FDA-Public Use
  Company Number: US-TEVA-VS-3137442

PATIENT
  Age: 43 Year
  Sex: Female

DRUGS (1)
  1. TOPIRAMATE [Suspect]
     Active Substance: TOPIRAMATE
     Indication: Migraine prophylaxis
     Route: 065

REACTIONS (4)
  - Renal tubular acidosis [Recovering/Resolving]
  - Hypernatraemia [Recovered/Resolved]
  - Acidosis hyperchloraemic [Recovering/Resolving]
  - Acidosis hyperchloraemic [Recovering/Resolving]
